FAERS Safety Report 8413406-0 (Version None)
Quarter: 2012Q2

REPORT INFORMATION
  Report Type: 
  Country: None (occurrence: None)
  Receive Date: 20120605
  Receipt Date: 20120601
  Transmission Date: 20120825
  Serious: Yes (Hospitalization, Other)
  Sender: FDA-Public Use
  Company Number: US-PFIZER INC-2012126347

PATIENT
  Sex: Female
  Weight: 54 kg

DRUGS (13)
  1. NICOTINE [Concomitant]
     Indication: SMOKING CESSATION THERAPY
     Dosage: UNK
  2. LEVOXYL [Concomitant]
     Indication: THYROID DISORDER
     Dosage: 88 UG, UNK
  3. LOPID [Suspect]
     Indication: BLOOD CHOLESTEROL INCREASED
     Dosage: 600 MG, 1X/DAY
     Route: 048
  4. ALPRAZOLAM [Concomitant]
     Indication: SLEEP DISORDER
     Dosage: UNK, DAILY
  5. LIPITOR [Suspect]
     Indication: BLOOD CHOLESTEROL INCREASED
     Dosage: 20 MG, 1X/DAY
     Route: 048
  6. SYNTHROID [Concomitant]
     Indication: HYPOTHYROIDISM
     Dosage: UNK
  7. POTASSIUM [Concomitant]
     Dosage: 500 MG, UNK
  8. VITAMIN D [Concomitant]
     Dosage: UNK
  9. SERTRALINE [Concomitant]
     Dosage: 50 MG, DAILY
     Dates: start: 20120101
  10. TRAMADOL [Concomitant]
     Indication: PAIN
     Dosage: 50 MG, UNK
     Dates: start: 20120101
  11. RISPERIDONE [Suspect]
     Indication: SLEEP DISORDER
     Dosage: 0.5 MG, 1X/DAY
     Dates: start: 20120101
  12. POTASSIUM [Concomitant]
     Dosage: UNK
  13. VITAMIN B-12 [Concomitant]
     Dosage: UNK

REACTIONS (11)
  - PHARYNGEAL NEOPLASM [None]
  - CONTUSION [None]
  - ABDOMINAL DISCOMFORT [None]
  - INTRACRANIAL ANEURYSM [None]
  - MEMORY IMPAIRMENT [None]
  - DYSPEPSIA [None]
  - VOMITING [None]
  - BLISTER [None]
  - SKIN DISCOLOURATION [None]
  - WEIGHT DECREASED [None]
  - NAUSEA [None]
